FAERS Safety Report 7504872-3 (Version None)
Quarter: 2011Q2

REPORT INFORMATION
  Report Type: 
  Country: None (occurrence: None)
  Receive Date: 20110526
  Receipt Date: 20110518
  Transmission Date: 20111010
  Serious: Yes (Hospitalization)
  Sender: FDA-Public Use
  Company Number: US-BIOGENIDEC-2009BI017822

PATIENT
  Age: 50 Year
  Sex: Male
  Weight: 93 kg

DRUGS (2)
  1. TYSABRI [Suspect]
     Route: 042
     Dates: start: 20110418
  2. TYSABRI [Suspect]
     Indication: MULTIPLE SCLEROSIS
     Route: 042
     Dates: start: 20080714, end: 20080714

REACTIONS (3)
  - FATIGUE [None]
  - PROGRESSIVE MULTIPLE SCLEROSIS [None]
  - ASTHENIA [None]
